FAERS Safety Report 5446099-5 (Version None)
Quarter: 2007Q3

REPORT INFORMATION
  Report Type: 
  Country: None (occurrence: None)
  Receive Date: 20070907
  Receipt Date: 20070903
  Transmission Date: 20080115
  Serious: Yes (Death, Life-Threatening, Hospitalization)
  Sender: FDA-Public Use
  Company Number: JP-AVENTIS-200712385JP

PATIENT
  Age: 69 Year
  Sex: Female
  Weight: 37 kg

DRUGS (10)
  1. TAXOTERE [Suspect]
     Indication: NON-SMALL CELL LUNG CANCER
     Route: 041
     Dates: start: 20070604, end: 20070624
  2. VANDETANIB [Suspect]
     Indication: NON-SMALL CELL LUNG CANCER
     Route: 048
     Dates: start: 20070604, end: 20070705
  3. IRESSA [Suspect]
     Indication: NON-SMALL CELL LUNG CANCER
     Route: 048
     Dates: start: 20070725, end: 20070731
  4. BONALON [Concomitant]
     Indication: OSTEOPOROSIS
     Route: 048
     Dates: start: 20070215
  5. LENDORMIN [Concomitant]
     Indication: INSOMNIA
     Route: 048
     Dates: start: 20070221
  6. LOXONIN                            /00890701/ [Concomitant]
     Indication: PAIN
     Dosage: DOSE: 3 DF/DAY
     Route: 048
     Dates: start: 20070525
  7. CODEINE PHOSPHATE [Concomitant]
     Route: 048
     Dates: start: 20070526
  8. ROHYPNOL [Concomitant]
     Indication: INSOMNIA
     Route: 048
     Dates: start: 20070717
  9. SELBEX [Concomitant]
     Indication: GASTRITIS PROPHYLAXIS
     Dosage: DOSE: 3 DF/DAY
     Route: 048
     Dates: start: 20070723
  10. PRAVASTATIN [Concomitant]
     Route: 048

REACTIONS (1)
  - INTERSTITIAL LUNG DISEASE [None]
